FAERS Safety Report 9165992 (Version 1)
Quarter: 2013Q1

REPORT INFORMATION
  Report Type: Report from Study
  Country: JP (occurrence: JP)
  Receive Date: 20130315
  Receipt Date: 20130315
  Transmission Date: 20140127
  Serious: Yes (Hospitalization)
  Sender: FDA-Public Use
  Company Number: JP-VIIV HEALTHCARE LIMITED-B0682024A

PATIENT
  Age: 6 Decade
  Sex: Male

DRUGS (13)
  1. LEXIVA [Suspect]
     Indication: HIV INFECTION
     Dosage: 1400MG PER DAY
     Route: 048
     Dates: start: 20080814
  2. NORVIR [Suspect]
     Indication: HIV INFECTION
     Route: 048
     Dates: start: 20080814
  3. TRUVADA [Suspect]
     Indication: HIV INFECTION
     Route: 048
     Dates: start: 20080814
  4. DAIPHEN [Concomitant]
     Indication: PNEUMOCYSTIS JIROVECII PNEUMONIA
     Dosage: 1IUAX PER DAY
     Route: 048
     Dates: start: 20080522, end: 20091209
  5. METHADERM [Concomitant]
     Indication: ECZEMA
     Route: 061
     Dates: start: 20080619
  6. HIRUDOID [Concomitant]
     Indication: ECZEMA
     Route: 061
     Dates: start: 20080619
  7. MENTAX [Concomitant]
     Indication: TINEA INFECTION
     Route: 061
     Dates: start: 20080717, end: 20100804
  8. MENTAX [Concomitant]
     Indication: TINEA INFECTION
     Route: 061
     Dates: start: 20080717, end: 20100804
  9. PETROLATUM SALICYLATE [Concomitant]
     Indication: ECZEMA
     Route: 061
     Dates: start: 20080717, end: 20091209
  10. DALACIN T [Concomitant]
     Indication: ECZEMA
     Route: 061
     Dates: start: 20080717, end: 20090708
  11. ANTEBATE [Concomitant]
     Indication: ECZEMA
     Route: 061
     Dates: start: 20080305, end: 20110213
  12. ZYRTEC [Concomitant]
     Indication: ECZEMA
     Dosage: 10MG TWICE PER DAY
     Route: 048
     Dates: start: 20080619, end: 20081105
  13. POLARAMINE [Concomitant]
     Indication: ECZEMA
     Dosage: 2MG PER DAY
     Route: 048
     Dates: start: 20080619, end: 20081105

REACTIONS (4)
  - Colon cancer [Recovering/Resolving]
  - Hepatitis B [Recovering/Resolving]
  - Immune reconstitution inflammatory syndrome [Unknown]
  - Herpes zoster oticus [Recovering/Resolving]
